FAERS Safety Report 13387880 (Version 5)
Quarter: 2018Q2

REPORT INFORMATION
  Report Type: Spontaneous
  Country: DE (occurrence: DE)
  Receive Date: 20170330
  Receipt Date: 20180611
  Transmission Date: 20180711
  Serious: Yes (Other)
  Sender: FDA-Public Use
  Company Number: DE-009507513-1703DEU011955

PATIENT
  Age: 68 Year
  Sex: Male
  Weight: 90 kg

DRUGS (18)
  1. GRANISETRON [Concomitant]
     Active Substance: GRANISETRON
  2. DEXAMETHASONE. [Concomitant]
     Active Substance: DEXAMETHASONE
     Dosage: 2 MG, QD; 1-0-0
     Route: 048
  3. PANTOZOL [Concomitant]
     Active Substance: PANTOPRAZOLE SODIUM
     Dosage: 20 MG, QAM (1-0-0)
  4. BIFITERAL [Concomitant]
     Active Substance: LACTULOSE
     Dosage: 1-1-1
  5. JANUVIA [Concomitant]
     Active Substance: SITAGLIPTIN PHOSPHATE
     Indication: TYPE 2 DIABETES MELLITUS
     Dosage: 1-0-0 CURRENTLY BREAK DUE TO INCREASED TRANSAMINASES
     Route: 048
     Dates: start: 20170116, end: 20170307
  6. DEXAMETHASONE. [Concomitant]
     Active Substance: DEXAMETHASONE
     Indication: PROPHYLAXIS
     Dosage: 8 MG, QD; 1-0-0
     Route: 048
  7. NOVALGIN (DIPYRONE) [Concomitant]
     Active Substance: DIPYRONE
     Indication: PROCEDURAL HEADACHE
     Dosage: 2000MG, QID, 4X1/DAY
     Route: 048
     Dates: start: 20170116, end: 20170307
  8. DULCOLAX NOS [Concomitant]
     Active Substance: BISACODYL OR DOCUSATE SODIUM
     Dosage: 2 CAPS., EVERY 2. DAY
  9. CONCOR [Concomitant]
     Active Substance: BISOPROLOL FUMARATE
     Indication: HYPERTENSION
     Dosage: 1-0-0
     Route: 048
     Dates: start: 20170116, end: 20170307
  10. REKAWAN [Concomitant]
     Active Substance: POTASSIUM CHLORIDE
     Dosage: UNK, QD (1-0-0)
  11. NOVALGIN (DIPYRONE) [Concomitant]
     Active Substance: DIPYRONE
     Indication: ANALGESIC THERAPY
  12. TAVOR (FLUCONAZOLE) [Concomitant]
     Active Substance: FLUCONAZOLE
     Dosage: 1 MG, PRN (1 MG ON DEMAND)
  13. TEMOZOLOMIDE. [Suspect]
     Active Substance: TEMOZOLOMIDE
     Indication: GLIOBLASTOMA MULTIFORME
     Dosage: 140 MG, QD
     Route: 048
     Dates: start: 20170125, end: 20170207
  14. NOVALGIN (DIPYRONE) [Concomitant]
     Active Substance: DIPYRONE
     Indication: PROCEDURAL HEADACHE
     Dosage: 1-1-1
  15. MONO EMBOLEX [Concomitant]
     Active Substance: CERTOPARIN SODIUM
     Indication: PROPHYLAXIS
     Dosage: 3000 IU INTERNATIONAL UNTIS, 1XDAILY 19:00
     Route: 058
     Dates: start: 20170116, end: 20170307
  16. COTRIM FORTE [Concomitant]
     Active Substance: SULFAMETHOXAZOLE\TRIMETHOPRIM
     Indication: HYPERTENSION
     Dosage: 2X1 EVERY SECOND DAY
     Route: 048
     Dates: start: 20170125, end: 20170207
  17. HYDROCHLOROTHIAZIDE. [Concomitant]
     Active Substance: HYDROCHLOROTHIAZIDE
     Indication: HYPERTENSION
     Dosage: 12.5 MG, QD
     Route: 048
     Dates: start: 20170116, end: 20170307
  18. MELPERONE [Concomitant]
     Active Substance: MELPERONE
     Indication: SLEEP DISORDER
     Dosage: 50 MG, QD; 1-0-0
     Route: 048
     Dates: start: 20170116, end: 20170307

REACTIONS (16)
  - Cholelithiasis [Unknown]
  - Hepatic enzyme increased [Recovering/Resolving]
  - Hemiplegia [Unknown]
  - General physical health deterioration [Unknown]
  - Constipation [Unknown]
  - Agitation [Recovered/Resolved]
  - Blood bilirubin increased [Recovering/Resolving]
  - Drug-induced liver injury [Recovering/Resolving]
  - Procedural headache [Recovering/Resolving]
  - C-reactive protein abnormal [Unknown]
  - Platelet count decreased [Recovered/Resolved]
  - Gait inability [Unknown]
  - Confusional state [Recovered/Resolved]
  - Jaundice [Recovering/Resolving]
  - Disorientation [Unknown]
  - White blood cell count decreased [Recovered/Resolved]

NARRATIVE: CASE EVENT DATE: 2017
